FAERS Safety Report 11806377 (Version 1)
Quarter: 2015Q4

REPORT INFORMATION
  Report Type: Spontaneous
  Country: US (occurrence: None)
  Receive Date: 20151204
  Receipt Date: 20151204
  Transmission Date: 20160305
  Serious: No
  Sender: FDA-Public Use
  Company Number: None

PATIENT

DRUGS (1)
  1. POSACONAZOLE POSACONAZOLE [Suspect]
     Active Substance: POSACONAZOLE
     Dosage: DOSAGE FORM: SUSPENSION
     Route: 048

REACTIONS (2)
  - Accidental overdose [None]
  - Transcription medication error [None]
